FAERS Safety Report 22256700 (Version 6)
Quarter: 2025Q1

REPORT INFORMATION
  Report Type: Report from Study
  Country: US (occurrence: US)
  Receive Date: 20230426
  Receipt Date: 20250319
  Transmission Date: 20250408
  Serious: Yes (Disabling, Other)
  Sender: AMGEN
  Company Number: US-HORIZON THERAPEUTICS-HZN-2021-002997

PATIENT
  Age: 62 Year
  Sex: Female
  Weight: 77 kg

DRUGS (31)
  1. TEPEZZA [Suspect]
     Active Substance: TEPROTUMUMAB-TRBW
     Indication: Endocrine ophthalmopathy
     Dosage: 830 MILLIGRAM, Q3WK, (FIRST INFUSION)
     Route: 042
     Dates: start: 20210601
  2. TEPEZZA [Suspect]
     Active Substance: TEPROTUMUMAB-TRBW
     Dosage: 1660 MILLIGRAM, Q3WK, (SECOND INFUSION)
     Route: 042
  3. TEPEZZA [Suspect]
     Active Substance: TEPROTUMUMAB-TRBW
     Dosage: 1660 MILLIGRAM, Q3WK, (THIRD INFUSION)
     Route: 042
  4. TEPEZZA [Suspect]
     Active Substance: TEPROTUMUMAB-TRBW
     Dosage: 1660 MILLIGRAM, Q3WK, (FOURTH INFUSION)
     Route: 042
  5. TEPEZZA [Suspect]
     Active Substance: TEPROTUMUMAB-TRBW
     Route: 042
     Dates: start: 20210826
  6. TEPEZZA [Suspect]
     Active Substance: TEPROTUMUMAB-TRBW
     Route: 042
     Dates: start: 20210916
  7. TEPEZZA [Suspect]
     Active Substance: TEPROTUMUMAB-TRBW
     Route: 042
     Dates: start: 20211007
  8. TEPEZZA [Suspect]
     Active Substance: TEPROTUMUMAB-TRBW
     Dosage: 1660 MILLIGRAM, Q3WK, (EIGHT INFUSION)
     Route: 042
     Dates: start: 20211028
  9. TEPEZZA [Suspect]
     Active Substance: TEPROTUMUMAB-TRBW
     Dosage: 820 MILLIGRAM, Q3WK, (SECOND CYCLE FIRST INFUSION)
     Route: 042
     Dates: start: 20220512
  10. TEPEZZA [Suspect]
     Active Substance: TEPROTUMUMAB-TRBW
     Dosage: 1640 MILLIGRAM, Q3WK, (SECOND CYCLE SECOND INFUSION)
     Route: 042
     Dates: start: 20220623
  11. TEPEZZA [Suspect]
     Active Substance: TEPROTUMUMAB-TRBW
     Dosage: 1640 MILLIGRAM, Q3WK, (SECOND CYCLE FOURTH INFUSION)
     Route: 042
     Dates: start: 20220714
  12. TEPEZZA [Suspect]
     Active Substance: TEPROTUMUMAB-TRBW
     Dosage: 1640 MILLIGRAM, Q2WK, (SECOND CYCLE SIXTH INFUSION)
     Route: 042
     Dates: start: 20220825, end: 20220825
  13. TEPEZZA [Suspect]
     Active Substance: TEPROTUMUMAB-TRBW
     Dosage: 1640 MILLIGRAM, Q3WK, (SECOND CYCLE SEVENTH INFUSION)
     Route: 042
     Dates: start: 20221006
  14. TEPEZZA [Suspect]
     Active Substance: TEPROTUMUMAB-TRBW
     Route: 042
     Dates: start: 20221027
  15. PREDNISONE [Suspect]
     Active Substance: PREDNISONE
     Indication: Polymyalgia rheumatica
     Dosage: 5 MILLIGRAM, QID
     Route: 048
  16. ASCORBIC ACID [Concomitant]
     Active Substance: ASCORBIC ACID
     Indication: Product used for unknown indication
     Route: 065
  17. CALCIUM [Concomitant]
     Active Substance: CALCIUM
     Indication: Product used for unknown indication
     Route: 065
  18. SYNTHROID [Concomitant]
     Active Substance: LEVOTHYROXINE SODIUM
     Indication: Thyroid disorder
     Dosage: 112 MICROGRAM PER DAY
     Route: 048
  19. Womens 50 plus multivits [Concomitant]
     Indication: Product used for unknown indication
     Route: 065
  20. METHOTREXATE [Concomitant]
     Active Substance: METHOTREXATE
     Indication: Product used for unknown indication
     Route: 048
  21. RISEDRONATE SODIUM [Concomitant]
     Active Substance: RISEDRONATE SODIUM
     Route: 048
  22. FOLIC ACID [Concomitant]
     Active Substance: FOLIC ACID
     Dosage: 1 MILLIGRAM, QD
     Route: 048
  23. FISH OIL [Concomitant]
     Active Substance: FISH OIL
     Route: 065
  24. MAGNESIUM [Concomitant]
     Active Substance: MAGNESIUM
     Route: 065
  25. VITAMIN D3 [Concomitant]
     Active Substance: CHOLECALCIFEROL
     Route: 065
  26. Centrum Adult [Concomitant]
     Route: 065
  27. ARTIFICIAL TEARS [Concomitant]
     Route: 065
  28. POTASSIUM [Concomitant]
     Active Substance: POTASSIUM
     Route: 065
  29. MOBIC [Concomitant]
     Active Substance: MELOXICAM
     Dosage: 15 MILLIGRAM, QD
     Route: 065
  30. METFORMIN HYDROCHLORIDE [Concomitant]
     Active Substance: METFORMIN HYDROCHLORIDE
     Dosage: 750 MILLIGRAM, QD
     Route: 048
  31. HYDROXYCHLOROQUINE SULFATE [Concomitant]
     Active Substance: HYDROXYCHLOROQUINE SULFATE
     Route: 048

REACTIONS (55)
  - Physical disability [Not Recovered/Not Resolved]
  - Deafness neurosensory [Not Recovered/Not Resolved]
  - Disability [Not Recovered/Not Resolved]
  - Haematochezia [Not Recovered/Not Resolved]
  - Polymyalgia rheumatica [Unknown]
  - Ear pain [Unknown]
  - Pain [Not Recovered/Not Resolved]
  - Defaecation urgency [Unknown]
  - Dizziness [Not Recovered/Not Resolved]
  - Myalgia [Not Recovered/Not Resolved]
  - Hypogeusia [Unknown]
  - Injury [Not Recovered/Not Resolved]
  - Anxiety [Not Recovered/Not Resolved]
  - Emotional distress [Not Recovered/Not Resolved]
  - Discomfort [Not Recovered/Not Resolved]
  - Condition aggravated [Not Recovered/Not Resolved]
  - Impaired quality of life [Not Recovered/Not Resolved]
  - Weight increased [Unknown]
  - Haematuria [Unknown]
  - Pollakiuria [Recovered/Resolved]
  - Stress urinary incontinence [Recovered/Resolved]
  - Economic problem [Not Recovered/Not Resolved]
  - Enuresis [Recovered/Resolved]
  - Nail infection [Unknown]
  - Eye pruritus [Unknown]
  - Lid lag [Unknown]
  - Chorioretinal folds [Unknown]
  - Conjunctival haemorrhage [Unknown]
  - Vision blurred [Not Recovered/Not Resolved]
  - Diplopia [Not Recovered/Not Resolved]
  - Foreign body sensation in eyes [Unknown]
  - Chalazion [Recovered/Resolved]
  - Lacrimation increased [Unknown]
  - Ocular discomfort [Unknown]
  - Eye pain [Unknown]
  - Off label use [Unknown]
  - Product quality issue [Unknown]
  - Photophobia [Unknown]
  - COVID-19 [Unknown]
  - Glycosylated haemoglobin increased [Unknown]
  - Ingrowing nail [Unknown]
  - Asthenia [Unknown]
  - Alopecia [Unknown]
  - Nail disorder [Unknown]
  - Blood glucose increased [Unknown]
  - Muscle spasms [Unknown]
  - Fatigue [Unknown]
  - Nausea [Not Recovered/Not Resolved]
  - Tinnitus [Unknown]
  - Onychoclasis [Unknown]
  - Diarrhoea [Unknown]
  - Alopecia [Unknown]
  - Diarrhoea [Unknown]
  - Headache [Not Recovered/Not Resolved]
  - Tinnitus [Unknown]

NARRATIVE: CASE EVENT DATE: 20210101
